FAERS Safety Report 23864464 (Version 2)
Quarter: 2024Q4

REPORT INFORMATION
  Report Type: Spontaneous
  Country: US (occurrence: US)
  Receive Date: 20240516
  Receipt Date: 20241110
  Transmission Date: 20250114
  Serious: No
  Sender: SANOFI AVENTIS
  Company Number: US-SA-SAC20240509000992

PATIENT
  Sex: Female
  Weight: 63.5 kg

DRUGS (5)
  1. DUPIXENT [Suspect]
     Active Substance: DUPILUMAB
     Indication: Dermatitis atopic
     Dosage: 300 MG, QOW
     Route: 058
  2. THORNE [Concomitant]
     Indication: Abdominal discomfort
     Dosage: UNK
  3. GABA [GAMMA-AMINOBUTYRIC ACID] [Concomitant]
     Dosage: UNK
  4. AKKERMANSIA MUCINIPHILA [Concomitant]
     Dosage: UNK
  5. METHYLCOBALAMIN [Concomitant]
     Active Substance: METHYLCOBALAMIN
     Dosage: UNK

REACTIONS (1)
  - Arthralgia [Not Recovered/Not Resolved]
